FAERS Safety Report 23125656 (Version 2)
Quarter: 2023Q4

REPORT INFORMATION
  Report Type: Spontaneous
  Country: US (occurrence: US)
  Receive Date: 20231030
  Receipt Date: 20231128
  Transmission Date: 20240109
  Serious: Yes (Hospitalization, Other)
  Sender: FDA-Public Use
  Company Number: US-SA-SAC20231023000276

PATIENT
  Age: 1 Year
  Sex: Female
  Weight: 11.5 kg

DRUGS (15)
  1. XENPOZYME [Suspect]
     Active Substance: OLIPUDASE ALFA-RPCP
     Indication: Niemann-Pick disease
     Dosage: 0.03 MG/KG, 1X
     Route: 041
     Dates: start: 20221227, end: 20221227
  2. XENPOZYME [Suspect]
     Active Substance: OLIPUDASE ALFA-RPCP
     Dosage: 0.1 MG/KG (ON 09-JAN-2023 AND 23-JAN-2023)
     Route: 041
     Dates: start: 20230109, end: 20230123
  3. XENPOZYME [Suspect]
     Active Substance: OLIPUDASE ALFA-RPCP
     Dosage: 0.1 MG/KG (ON 08-FEB-2023, 20-FEB-2023 AND 06-MAR-2023)
     Route: 041
     Dates: start: 20230208, end: 20230306
  4. XENPOZYME [Suspect]
     Active Substance: OLIPUDASE ALFA-RPCP
     Dosage: 0.6 MG/KG, 1X
     Route: 041
     Dates: start: 20230320, end: 20230320
  5. XENPOZYME [Suspect]
     Active Substance: OLIPUDASE ALFA-RPCP
     Dosage: 0.3 MG/KG, 1X (DOSE DECREASED DUE TO ILLNESS)
     Route: 041
     Dates: start: 20230404, end: 20230404
  6. XENPOZYME [Suspect]
     Active Substance: OLIPUDASE ALFA-RPCP
     Dosage: 0.6 MG/KG (ON 17-APR-2023 AND 01-MAY-2023)
     Route: 041
     Dates: start: 20230417, end: 20230501
  7. XENPOZYME [Suspect]
     Active Substance: OLIPUDASE ALFA-RPCP
     Dosage: 1 MG/KG, 1X
     Route: 041
     Dates: start: 20230515, end: 20230515
  8. XENPOZYME [Suspect]
     Active Substance: OLIPUDASE ALFA-RPCP
     Dosage: 0.1 MG/KG, 1X
     Route: 041
     Dates: start: 20230530, end: 20230530
  9. XENPOZYME [Suspect]
     Active Substance: OLIPUDASE ALFA-RPCP
     Dosage: 2 MG/KG (ON 13-JUN-2023, 26-JUN-2023, 24-JUL-2023-WEEK 15, 24-AUG-2023, 06-SEP-2023 AND 20-SEP-2023)
     Route: 041
     Dates: start: 20230613, end: 20230920
  10. XENPOZYME [Suspect]
     Active Substance: OLIPUDASE ALFA-RPCP
     Dosage: 3 MG/KG (35.72MG), QOW
     Route: 041
     Dates: start: 20231002
  11. DIPHENHYDRAMINE [Concomitant]
     Active Substance: DIPHENHYDRAMINE
     Indication: Premedication
     Dosage: 12.5 MG (30-60 MINUTES PRIOR TO THE INFUSION) VIA CVAD
     Route: 042
     Dates: start: 20231016, end: 20231016
  12. DIPHENHYDRAMINE [Concomitant]
     Active Substance: DIPHENHYDRAMINE
     Dosage: 12.5 MG (3 HOURS AFTER PRE-INFUSION DONE)
     Route: 042
     Dates: start: 20231016, end: 20231016
  13. METHYLPREDNISOLONE [Concomitant]
     Active Substance: METHYLPREDNISOLONE
     Indication: Premedication
     Dosage: 12 MG (30-60 MINUTES PRIOR TO THE INFUSION) VIA CVAD
     Route: 042
     Dates: start: 20231016, end: 20231016
  14. ONDANSETRON [Concomitant]
     Active Substance: ONDANSETRON
     Indication: Premedication
     Dosage: 2 MG (30-60 MINUTES PRIOR TO THE INFUSION)
     Route: 042
     Dates: start: 20231016, end: 20231016
  15. ACETAMINOPHEN [Concomitant]
     Active Substance: ACETAMINOPHEN
     Indication: Premedication
     Dosage: 120 MG (30-60 MINTUES PRIOR TO THE INFUSION) VAI GASTRIC TUBE
     Route: 048
     Dates: start: 20231016, end: 20231016

REACTIONS (7)
  - Anaphylactic reaction [Recovered/Resolved]
  - Wheezing [Recovered/Resolved]
  - Dyspnoea [Recovered/Resolved]
  - Erythema [Recovered/Resolved]
  - Rash [Recovered/Resolved]
  - Urticaria [Recovered/Resolved]
  - Illness [Unknown]

NARRATIVE: CASE EVENT DATE: 20230101
